FAERS Safety Report 24550361 (Version 1)
Quarter: 2024Q4

REPORT INFORMATION
  Report Type: Report from Study
  Country: JP (occurrence: JP)
  Receive Date: 20241025
  Receipt Date: 20241025
  Transmission Date: 20250114
  Serious: Yes (Death, Other)
  Sender: JOHNSON AND JOHNSON
  Company Number: JP-JNJFOC-20241060255

PATIENT

DRUGS (1)
  1. REMICADE [Suspect]
     Active Substance: INFLIXIMAB
     Indication: Behcet^s syndrome
     Route: 041

REACTIONS (24)
  - Mucormycosis [Fatal]
  - Renal infarct [Fatal]
  - Pancreatic carcinoma [Fatal]
  - Small intestinal perforation [Fatal]
  - Tuberculosis [Unknown]
  - Pneumocystis jirovecii pneumonia [Unknown]
  - Interstitial lung disease [Unknown]
  - Cytopenia [Unknown]
  - Lung neoplasm malignant [Unknown]
  - Interstitial lung disease [Unknown]
  - Pneumonia [Unknown]
  - Gastric cancer [Unknown]
  - Cellulitis [Unknown]
  - Infusion related reaction [Unknown]
  - Viral infection [Unknown]
  - Thrombocytopenia [Unknown]
  - Post procedural infection [Unknown]
  - Herpes zoster [Unknown]
  - Cytomegalovirus infection [Unknown]
  - Therapeutic product effect decreased [Unknown]
  - Nasopharyngitis [Unknown]
  - Upper respiratory tract infection [Unknown]
  - Cough [Unknown]
  - Pyrexia [Unknown]
